FAERS Safety Report 9882284 (Version 2)
Quarter: 2014Q1

REPORT INFORMATION
  Report Type: Spontaneous
  Country: JP (occurrence: JP)
  Receive Date: 20140207
  Receipt Date: 20140228
  Transmission Date: 20141002
  Serious: Yes (Hospitalization, Other)
  Sender: FDA-Public Use
  Company Number: JP-TAKEDA-2014TJP001239

PATIENT
  Age: 72 Year
  Sex: Male
  Weight: 67.3 kg

DRUGS (6)
  1. NESINA TABLETS 25MG [Suspect]
     Indication: DIABETES MELLITUS
     Dosage: 25 MG, QD
     Route: 048
     Dates: start: 20120724
  2. BLOPRESS [Concomitant]
     Indication: HYPERTENSION
     Dosage: 4 MG, QD
     Route: 048
     Dates: start: 20020424
  3. NORVASC [Concomitant]
     Indication: HYPERTENSION
     Dosage: 2.5 MG, QD
     Route: 048
     Dates: start: 20020419
  4. THEODUR [Concomitant]
     Indication: ASTHMA
     Dosage: 200 MG, BID
     Route: 048
     Dates: start: 20050314
  5. PULMICORT TURBUHALER [Concomitant]
     Indication: ASTHMA
     Dosage: 200 ?G, BID
     Route: 050
     Dates: start: 20060130
  6. MUCODYNE [Concomitant]
     Indication: ASTHMA
     Dosage: 500 MG, TID
     Route: 048
     Dates: start: 20101207

REACTIONS (10)
  - Pancreatic carcinoma [Unknown]
  - Colon cancer [Unknown]
  - Diabetes mellitus [Recovering/Resolving]
  - Decreased appetite [Recovered/Resolved]
  - Thirst [Recovered/Resolved]
  - Pollakiuria [Recovered/Resolved]
  - Dysphonia [Recovered/Resolved]
  - Dyspepsia [Recovered/Resolved]
  - Abdominal discomfort [Recovered/Resolved]
  - Malaise [Recovered/Resolved]
